FAERS Safety Report 23238418 (Version 1)
Quarter: 2023Q4

REPORT INFORMATION
  Report Type: Spontaneous
  Country: US (occurrence: US)
  Receive Date: 20231129
  Receipt Date: 20231129
  Transmission Date: 20240109
  Serious: No
  Sender: FDA-Public Use
  Company Number: US-JNJFOC-20231157790

PATIENT
  Sex: Male

DRUGS (4)
  1. RISPERDAL [Suspect]
     Active Substance: RISPERIDONE
     Indication: Product used for unknown indication
     Route: 048
  2. RISPERDAL [Suspect]
     Active Substance: RISPERIDONE
     Indication: Affective disorder
     Dosage: VARYING DOSES OF 0.25 MG AND 0.5 MG WITH VARYING FREQUENCIES OF ONCE AND TWICE DAILY
     Route: 048
     Dates: end: 2010
  3. RISPERDAL [Suspect]
     Active Substance: RISPERIDONE
     Indication: Aggression
  4. RISPERDAL [Suspect]
     Active Substance: RISPERIDONE
     Indication: Agitation

REACTIONS (2)
  - Weight increased [Unknown]
  - Off label use [Unknown]

NARRATIVE: CASE EVENT DATE: 20100101
